FAERS Safety Report 18030560 (Version 2)
Quarter: 2021Q4

REPORT INFORMATION
  Report Type: Spontaneous
  Country: US (occurrence: US)
  Receive Date: 20200716
  Receipt Date: 20211202
  Transmission Date: 20220303
  Serious: Yes (Other)
  Sender: FDA-Public Use
  Company Number: US-GLAXOSMITHKLINE-US2020133137

PATIENT
  Sex: Female

DRUGS (18)
  1. RANITIDINE [Suspect]
     Active Substance: RANITIDINE
  2. RANITIDINE [Suspect]
     Active Substance: RANITIDINE
     Dosage: UNK
  3. RANITIDINE HYDROCHLORIDE [Suspect]
     Active Substance: RANITIDINE HYDROCHLORIDE
  4. RANITIDINE HYDROCHLORIDE [Suspect]
     Active Substance: RANITIDINE HYDROCHLORIDE
     Dosage: UNK
  5. ZANTAC [Suspect]
     Active Substance: RANITIDINE HYDROCHLORIDE
  6. ZANTAC [Suspect]
     Active Substance: RANITIDINE HYDROCHLORIDE
     Dosage: UNK
  7. ZANTAC [Suspect]
     Active Substance: RANITIDINE HYDROCHLORIDE
     Indication: Gastritis
     Dosage: 150 MG, QD
     Route: 065
     Dates: start: 199001, end: 201901
  8. ZANTAC [Suspect]
     Active Substance: RANITIDINE HYDROCHLORIDE
     Dosage: UNK
  9. ZANTAC [Suspect]
     Active Substance: RANITIDINE HYDROCHLORIDE
     Indication: Gastritis
     Dosage: 150 MG, QD
     Route: 065
     Dates: start: 199001, end: 201901
  10. ZANTAC [Suspect]
     Active Substance: RANITIDINE HYDROCHLORIDE
     Dosage: UNK
  11. ZANTAC [Suspect]
     Active Substance: RANITIDINE HYDROCHLORIDE
     Indication: Gastritis
     Dosage: 150 MG, QD
     Route: 065
     Dates: start: 199001, end: 201901
  12. ZANTAC [Suspect]
     Active Substance: RANITIDINE HYDROCHLORIDE
     Dosage: UNK
  13. RANITIDINE [Suspect]
     Active Substance: RANITIDINE
     Indication: Gastritis
     Dosage: 150 MG, QD
     Route: 065
     Dates: start: 199001, end: 201901
  14. RANITIDINE [Suspect]
     Active Substance: RANITIDINE
     Dosage: UNK
  15. RANITIDINE [Suspect]
     Active Substance: RANITIDINE
     Indication: Gastritis
     Dosage: 150 MG BOTH
     Route: 065
     Dates: start: 199701, end: 201901
  16. RANITIDINE [Suspect]
     Active Substance: RANITIDINE
     Dosage: 75 MG, QD
     Route: 065
     Dates: start: 199701, end: 201901
  17. RANITIDINE [Suspect]
     Active Substance: RANITIDINE
     Indication: Gastritis
     Dosage: 150 MG BOTH
     Route: 065
     Dates: start: 199701, end: 201901
  18. RANITIDINE [Suspect]
     Active Substance: RANITIDINE
     Dosage: 75 MG, QD
     Route: 065
     Dates: start: 199701, end: 201901

REACTIONS (1)
  - Oesophageal carcinoma [Unknown]
